FAERS Safety Report 23573481 (Version 1)
Quarter: 2024Q1

REPORT INFORMATION
  Report Type: Spontaneous
  Country: KR (occurrence: KR)
  Receive Date: 20240228
  Receipt Date: 20240228
  Transmission Date: 20240409
  Serious: Yes (Hospitalization)
  Sender: FDA-Public Use
  Company Number: KR-SA-2024SA062791

PATIENT
  Sex: Male
  Weight: 70.3 kg

DRUGS (27)
  1. AFLIBERCEPT [Suspect]
     Active Substance: AFLIBERCEPT
     Indication: Colorectal cancer
     Dosage: 4 MG/KG, QOW
     Dates: start: 20211228
  2. IRINOTECAN HYDROCHLORIDE [Suspect]
     Active Substance: IRINOTECAN HYDROCHLORIDE
     Indication: Colorectal cancer
     Dosage: UNK, QOW
     Dates: start: 20211228
  3. IRINOTECAN HYDROCHLORIDE [Suspect]
     Active Substance: IRINOTECAN HYDROCHLORIDE
     Dosage: 150 MG/M2, QOW
     Dates: start: 20211228
  4. LEUCOVORIN CALCIUM [Suspect]
     Active Substance: LEUCOVORIN CALCIUM
     Indication: Colorectal cancer
     Dosage: UNK UNK, QOW
     Dates: start: 20211228
  5. LEUCOVORIN CALCIUM [Suspect]
     Active Substance: LEUCOVORIN CALCIUM
     Dosage: 400 MG/M2, QOW
     Dates: start: 20211228
  6. FLUOROURACIL [Suspect]
     Active Substance: FLUOROURACIL
     Indication: Colorectal cancer
     Dosage: 400 MG/M2, QOW
     Dates: start: 20211228
  7. FLUOROURACIL [Suspect]
     Active Substance: FLUOROURACIL
     Dosage: 400 MG/M2, QOW
     Dates: start: 20211228
  8. METOCLOPRAMIDE HYDROCHLORIDE [Concomitant]
     Active Substance: METOCLOPRAMIDE HYDROCHLORIDE
     Indication: Prophylaxis
     Dosage: 10 MG
     Dates: start: 20211230, end: 20220106
  9. BENZYDAMINE HYDROCHLORIDE [Concomitant]
     Active Substance: BENZYDAMINE HYDROCHLORIDE
     Indication: Prophylaxis
     Dosage: 15 ML
     Dates: start: 20211230
  10. SODIUM BICARBONATE [Concomitant]
     Active Substance: SODIUM BICARBONATE
     Indication: Prophylaxis
     Dosage: UNK
     Dates: start: 20211231
  11. ISOLEUCINE;LEUCINE;VALINE [Concomitant]
     Indication: Blood albumin
     Dosage: 20 G, Q12H
     Dates: start: 20211230, end: 20220110
  12. AMLODIPINE\TELMISARTAN [Concomitant]
     Active Substance: AMLODIPINE\TELMISARTAN
     Indication: Hypertension
     Dosage: UNK UNK, QD
     Dates: start: 20220110, end: 20220111
  13. LEVOCETIRIZINE HYDROCHLORIDE [Concomitant]
     Active Substance: LEVOCETIRIZINE HYDROCHLORIDE
     Indication: Pruritus
     Dosage: 5 MG, QD
     Dates: start: 20220110, end: 20220111
  14. ACYCLOVIR [Concomitant]
     Active Substance: ACYCLOVIR
     Indication: Herpes zoster
     Dosage: 250 ML, Q6H
     Dates: start: 20220110, end: 20240114
  15. ACETAMINOPHEN\TRAMADOL HYDROCHLORIDE [Concomitant]
     Active Substance: ACETAMINOPHEN\TRAMADOL HYDROCHLORIDE
     Indication: Pain
     Dosage: UNK UNK, Q8H
     Dates: start: 20220110
  16. ACETAMINOPHEN\TRAMADOL HYDROCHLORIDE [Concomitant]
     Active Substance: ACETAMINOPHEN\TRAMADOL HYDROCHLORIDE
     Dosage: UNK UNK, Q8H
     Dates: start: 20220112, end: 20220117
  17. PREDNISOLONE [Concomitant]
     Active Substance: PREDNISOLONE
     Indication: Pain
     Dosage: 5 MG, Q12H
     Dates: start: 20220110, end: 20220110
  18. PELUBIPROFEN [Concomitant]
     Active Substance: PELUBIPROFEN
     Indication: Pain
     Dosage: 30 MG, Q12H
     Dates: start: 20220111, end: 20220111
  19. S-PANTOPRAZOLE SODIUM TRIHYDRATE [Concomitant]
     Indication: Gastritis
     Dosage: 10 MG, QD
     Dates: start: 20220111
  20. S-AMLODIPINE BESYLATE [Concomitant]
     Indication: Hypertension
     Dosage: 25 MG, QD
     Dates: start: 20220112, end: 20220117
  21. PREGABALIN [Concomitant]
     Active Substance: PREGABALIN
     Indication: Herpes zoster
     Dosage: 75 MG, Q8H
     Dates: start: 20220112
  22. HYDROCHLOROTHIAZIDE [Concomitant]
     Active Substance: HYDROCHLOROTHIAZIDE
     Indication: Prophylaxis
     Dosage: 12.5 MG, QD
     Dates: start: 20220113, end: 20220113
  23. CHLORPHENIRAMINE MALEATE [Concomitant]
     Active Substance: CHLORPHENIRAMINE MALEATE
     Indication: Pruritus
     Dosage: 2 MG, Q8H
     Dates: start: 20220114
  24. CEFTRIAXONE SODIUM [Concomitant]
     Active Substance: CEFTRIAXONE SODIUM
     Indication: C-reactive protein increased
     Dosage: 2 G, QD
     Dates: start: 20220117, end: 20220117
  25. PROPACETAMOL HYDROCHLORIDE [Concomitant]
     Active Substance: PROPACETAMOL HYDROCHLORIDE
     Indication: Pyrexia
     Dosage: 1 G, QD
     Dates: start: 20220120, end: 20220120
  26. DEXAMETHASONE\NEOMYCIN SULFATE\POLYMYXIN B SULFATE [Concomitant]
     Active Substance: DEXAMETHASONE\NEOMYCIN SULFATE\POLYMYXIN B SULFATE
     Indication: Eye infection
     Dosage: UNK
     Dates: start: 20220120
  27. NIFEDIPINE [Concomitant]
     Active Substance: NIFEDIPINE
     Indication: Hypertension
     Dosage: 30 MG, Q12H
     Dates: start: 20220121

REACTIONS (7)
  - Herpes zoster [Recovered/Resolved]
  - C-reactive protein increased [Recovered/Resolved]
  - Pyrexia [Recovered/Resolved]
  - Pruritus [Not Recovered/Not Resolved]
  - Eye infection [Not Recovered/Not Resolved]
  - Blood creatinine increased [Recovered/Resolved]
  - Hypertension [Not Recovered/Not Resolved]

NARRATIVE: CASE EVENT DATE: 20220108
